FAERS Safety Report 7095322 (Version 4)
Quarter: 2012Q4

REPORT INFORMATION
  Report Type: 
  Country: US (occurrence: US)
  Receive Date: 20090825
  Receipt Date: 20120921
  Transmission Date: 20130627
  Serious: Yes (Life-Threatening, Hospitalization)
  Sender: FDA-Public Use
  Company Number: US-BAYER-200929905NA

PATIENT
  Age: 18 Year
  Sex: Female

DRUGS (8)
  1. YAZ [Suspect]
     Indication: MUSCLE SPASMS
     Dosage: UNK
     Dates: start: 20080611, end: 20090717
  2. YAZ [Suspect]
     Indication: CONTRACEPTION
  3. YAZ [Suspect]
     Indication: MENOMETRORRHAGIA
  4. RITALIN [Concomitant]
  5. MIDRIN [Concomitant]
  6. UNCODEABLE ^UNCLASSIFIABLE^ [Concomitant]
  7. YASMIN [Suspect]
  8. OCELLA [Suspect]

REACTIONS (24)
  - Cerebrovascular accident [Recovered/Resolved]
  - Cerebral thrombosis [None]
  - Cerebral artery occlusion [None]
  - Petechiae [None]
  - Ischaemic cerebral infarction [None]
  - Sinusitis [None]
  - General physical health deterioration [Recovered/Resolved]
  - Pain [Recovered/Resolved]
  - Anxiety [None]
  - Anhedonia [None]
  - Emotional distress [None]
  - Injury [None]
  - Tachycardia [Recovered/Resolved]
  - Lung hyperinflation [Recovered/Resolved]
  - Hemiparesis [Recovered/Resolved]
  - Facial paresis [Recovered/Resolved]
  - Muscular weakness [Recovered/Resolved]
  - Mobility decreased [Recovered/Resolved]
  - Gait disturbance [Recovered/Resolved]
  - Balance disorder [Recovered/Resolved]
  - Dizziness postural [Recovered/Resolved]
  - Asthenia [Recovered/Resolved]
  - Coordination abnormal [Recovered/Resolved]
  - Motor dysfunction [Recovered/Resolved]
